FAERS Safety Report 4285626-0 (Version None)
Quarter: 2004Q1

REPORT INFORMATION
  Report Type: 
  Country: None (occurrence: None)
  Receive Date: 20040203
  Receipt Date: 20040127
  Transmission Date: 20041129
  Serious: Yes (Life-Threatening)
  Sender: FDA-Public Use
  Company Number: 200410209DE

PATIENT
  Age: 64 Year
  Sex: Male

DRUGS (3)
  1. CLAFORAN [Suspect]
     Indication: CONDITION AGGRAVATED
     Dosage: 2 G BID IVF
     Dates: start: 20031215, end: 20031220
  2. CLAFORAN [Suspect]
     Indication: PANCREATITIS CHRONIC
     Dosage: 2 G BID IVF
     Dates: start: 20031215, end: 20031220
  3. METRONIDAZOLE [Concomitant]

REACTIONS (2)
  - PNEUMONITIS [None]
  - RESPIRATORY FAILURE [None]
